FAERS Safety Report 17865833 (Version 5)
Quarter: 2020Q4

REPORT INFORMATION
  Report Type: Spontaneous
  Country: US (occurrence: US)
  Receive Date: 20200605
  Receipt Date: 20201019
  Transmission Date: 20210113
  Serious: Yes (Other)
  Sender: FDA-Public Use
  Company Number: US-PFIZER INC-2020181282

PATIENT
  Age: 33 Year
  Sex: Male

DRUGS (2)
  1. XELJANZ [Suspect]
     Active Substance: TOFACITINIB CITRATE
     Dosage: 5 MG, 2X/DAY
     Route: 048
  2. XELJANZ [Suspect]
     Active Substance: TOFACITINIB CITRATE
     Indication: COLITIS ULCERATIVE
     Dosage: 10 MG, 2X/DAY(10MG TWICE DAILY PAST 8 WEEKS)
     Route: 048
     Dates: start: 202004

REACTIONS (8)
  - Condition aggravated [Unknown]
  - Groin pain [Not Recovered/Not Resolved]
  - Weight decreased [Unknown]
  - Haematochezia [Unknown]
  - Nocturia [Unknown]
  - Blood triglycerides increased [Unknown]
  - Frequent bowel movements [Unknown]
  - Calcinosis [Unknown]

NARRATIVE: CASE EVENT DATE: 2020
